FAERS Safety Report 8069838-6 (Version None)
Quarter: 2012Q1

REPORT INFORMATION
  Report Type: 
  Country: None (occurrence: None)
  Receive Date: 20120125
  Receipt Date: 20120125
  Transmission Date: 20120608
  Serious: Yes (Life-Threatening, Disabling, Other)
  Sender: FDA-Public Use
  Company Number: None

PATIENT
  Age: 59 Year
  Sex: Male
  Weight: 120.2 kg

DRUGS (1)
  1. TRICOR [Suspect]
     Indication: BLOOD CHOLESTEROL ABNORMAL
     Dosage: 1 TABLET
     Route: 048
     Dates: start: 20110920, end: 20111109

REACTIONS (18)
  - THROAT IRRITATION [None]
  - HEADACHE [None]
  - ASTHENIA [None]
  - ABDOMINAL PAIN UPPER [None]
  - RENAL IMPAIRMENT [None]
  - WHITE BLOOD CELL COUNT DECREASED [None]
  - DYSPEPSIA [None]
  - EPISTAXIS [None]
  - RESPIRATORY DISORDER [None]
  - PRURITUS [None]
  - PLATELET COUNT DECREASED [None]
  - DYSPNOEA [None]
  - URTICARIA [None]
  - DIARRHOEA [None]
  - ARTHRALGIA [None]
  - ANAEMIA [None]
  - MUSCULAR WEAKNESS [None]
  - COUGH [None]
